FAERS Safety Report 5828545-8 (Version None)
Quarter: 2008Q3

REPORT INFORMATION
  Report Type: 
  Country: None (occurrence: None)
  Receive Date: 20080729
  Receipt Date: 20080729
  Transmission Date: 20090109
  Serious: Yes (Other)
  Sender: FDA-Public Use
  Company Number: None

PATIENT
  Age: 67 Year
  Sex: Female
  Weight: 68.9467 kg

DRUGS (5)
  1. VANCOMYCIN HCL [Suspect]
     Indication: LOCALISED INFECTION
     Dosage: 1 GRAM IN 250 ML NS DAILY IV
     Route: 042
     Dates: start: 20080319, end: 20080321
  2. LISINOPRIL [Concomitant]
  3. ATENOLOL [Concomitant]
  4. LIPITOR [Concomitant]
  5. COLCHECUE [Concomitant]

REACTIONS (2)
  - DIZZINESS [None]
  - RASH PRURITIC [None]
